FAERS Safety Report 5463023-X (Version None)
Quarter: 2007Q3

REPORT INFORMATION
  Report Type: 
  Country: None (occurrence: None)
  Receive Date: 20070918
  Receipt Date: 20070918
  Transmission Date: 20080115
  Serious: Yes (Other)
  Sender: FDA-Public Use
  Company Number: None

PATIENT
  Age: 79 Year
  Sex: Male

DRUGS (1)
  1. NEVANAC [Suspect]
     Dosage: ONE EYE DROP 4 TIMES A DAY
     Route: 047
     Dates: start: 20070902, end: 20070906

REACTIONS (2)
  - CORNEAL EROSION [None]
  - CORNEAL OEDEMA [None]
